FAERS Safety Report 5173236-2 (Version None)
Quarter: 2006Q4

REPORT INFORMATION
  Report Type: 
  Country: None (occurrence: None)
  Receive Date: 20061214
  Receipt Date: 20061208
  Transmission Date: 20070319
  Serious: Yes (Other)
  Sender: FDA-Public Use
  Company Number: US-AVENTIS-200619964US

PATIENT
  Sex: Female

DRUGS (1)
  1. ARAVA [Suspect]

REACTIONS (3)
  - HEPATOTOXICITY [None]
  - LIVER FUNCTION TEST ABNORMAL [None]
  - MEDICATION ERROR [None]
